FAERS Safety Report 17257021 (Version 1)
Quarter: 2020Q1

REPORT INFORMATION
  Report Type: Spontaneous
  Country: US (occurrence: US)
  Receive Date: 20200109
  Receipt Date: 20200109
  Transmission Date: 20200409
  Serious: Yes (Hospitalization)
  Sender: FDA-Public Use
  Company Number: None

PATIENT
  Age: 59 Year
  Sex: Female

DRUGS (7)
  1. HUMIRA [Suspect]
     Active Substance: ADALIMUMAB
     Indication: RHEUMATOID ARTHRITIS
     Route: 058
     Dates: start: 20191001
  2. ELIQUIS [Suspect]
     Active Substance: APIXABAN
  3. SYNTHROID [Suspect]
     Active Substance: LEVOTHYROXINE SODIUM
  4. PREDNISONE. [Suspect]
     Active Substance: PREDNISONE
  5. NABUMATONE [Suspect]
     Active Substance: NABUMETONE
  6. FOLIC ACID. [Suspect]
     Active Substance: FOLIC ACID
  7. METHROTREXATE [Suspect]
     Active Substance: METHOTREXATE

REACTIONS (1)
  - Pulmonary embolism [None]

NARRATIVE: CASE EVENT DATE: 20191209
